FAERS Safety Report 17528635 (Version 3)
Quarter: 2022Q2

REPORT INFORMATION
  Report Type: Spontaneous
  Country: JP (occurrence: None)
  Receive Date: 20200311
  Receipt Date: 20220602
  Transmission Date: 20220721
  Serious: Yes (Hospitalization)
  Sender: FDA-Public Use
  Company Number: JP-EISAI MEDICAL RESEARCH-EC-2020-071349

PATIENT
  Sex: Male

DRUGS (3)
  1. LENVIMA [Suspect]
     Active Substance: LENVATINIB
     Indication: Hepatocellular carcinoma
     Dosage: DOSE AND FREQUENCY UNKNOWN
     Route: 048
  2. LENVIMA [Suspect]
     Active Substance: LENVATINIB
     Dosage: 4 MG, ONCE A DAY (MONDAY TO FRIDAY)
     Route: 048
     Dates: end: 2020
  3. CEFTAZIDIME [Suspect]
     Active Substance: CEFTAZIDIME
     Indication: C-reactive protein increased
     Dosage: DOSE AND FREQUENCY UNKNOWN
     Route: 041
     Dates: start: 20200601, end: 20200729

REACTIONS (2)
  - Pneumonia [Unknown]
  - Platelet count decreased [Recovered/Resolved]

NARRATIVE: CASE EVENT DATE: 20200301
